FAERS Safety Report 5594012-2 (Version None)
Quarter: 2008Q1

REPORT INFORMATION
  Report Type: 
  Country: None (occurrence: None)
  Receive Date: 20080116
  Receipt Date: 20080116
  Transmission Date: 20080703
  Serious: Yes (Other)
  Sender: FDA-Public Use
  Company Number: AU-GENENTECH-250512

PATIENT
  Age: 34 Year
  Sex: Female

DRUGS (3)
  1. RAPTIVA [Suspect]
     Indication: PUSTULAR PSORIASIS
     Dosage: 100 MG, 1/WEEK
     Route: 058
     Dates: start: 20041101
  2. METHOTREXATE [Concomitant]
     Indication: PSORIASIS
     Dosage: 20 MG, 1/WEEK
  3. CYCLOSPORINE [Concomitant]
     Indication: PSORIASIS
     Dosage: 150 MG, BID

REACTIONS (3)
  - DISSEMINATED CRYPTOCOCCOSIS [None]
  - HEADACHE [None]
  - WEIGHT DECREASED [None]
